FAERS Safety Report 11721255 (Version 3)
Quarter: 2015Q4

REPORT INFORMATION
  Report Type: Report from Study
  Country: US (occurrence: US)
  Receive Date: 20151110
  Receipt Date: 20151223
  Transmission Date: 20160304
  Serious: No
  Sender: FDA-Public Use
  Company Number: US-AMGEN-USASP2015117636

PATIENT
  Age: 70 Year
  Sex: Female

DRUGS (3)
  1. ENBREL [Suspect]
     Active Substance: ETANERCEPT
     Indication: PSORIASIS
  2. ENBREL [Suspect]
     Active Substance: ETANERCEPT
     Indication: PSORIATIC ARTHROPATHY
     Dosage: UNK
     Route: 065
     Dates: start: 2014
  3. LEVAQUIN [Concomitant]
     Active Substance: LEVOFLOXACIN
     Indication: TONSILLITIS
     Dosage: UNK

REACTIONS (5)
  - Nasopharyngitis [Unknown]
  - Incorrect product storage [Unknown]
  - Malaise [Unknown]
  - Tonsillitis [Unknown]
  - Hypersensitivity [Unknown]

NARRATIVE: CASE EVENT DATE: 2015
